FAERS Safety Report 17084511 (Version 3)
Quarter: 2020Q2

REPORT INFORMATION
  Report Type: Spontaneous
  Country: US (occurrence: US)
  Receive Date: 20191127
  Receipt Date: 20200624
  Transmission Date: 20200713
  Serious: Yes (Other)
  Sender: FDA-Public Use
  Company Number: US-ELI_LILLY_AND_COMPANY-US201911013062

PATIENT
  Sex: Female

DRUGS (10)
  1. EMGALITY [Suspect]
     Active Substance: GALCANEZUMAB-GNLM
     Indication: PRODUCT USED FOR UNKNOWN INDICATION
     Dosage: 120 MG, UNKNOWN
     Route: 058
     Dates: start: 20190625, end: 20191007
  2. ARMOUR THYROID [Concomitant]
     Active Substance: THYROID, PORCINE
     Dosage: 60 MG
  3. AZITHROMYCIN ANHYDROUS. [Concomitant]
     Active Substance: AZITHROMYCIN ANHYDROUS
     Dosage: 250 MG
  4. MONTELUKAST SODIUM. [Concomitant]
     Active Substance: MONTELUKAST SODIUM
     Dosage: 10 MG
  5. RIZATRIPTAN BENZOATE ODT [Concomitant]
  6. ZOLPIDEM TARTRATE. [Concomitant]
     Active Substance: ZOLPIDEM TARTRATE
     Dosage: 10 MG
  7. TRAMADOL HCL [Concomitant]
     Active Substance: TRAMADOL HYDROCHLORIDE
     Dosage: 50 MG
  8. FLUTICASONE PROPIONATE. [Concomitant]
     Active Substance: FLUTICASONE PROPIONATE
     Dosage: 50 UNK
  9. EMGALITY [Suspect]
     Active Substance: GALCANEZUMAB-GNLM
     Indication: PRODUCT USED FOR UNKNOWN INDICATION
     Dosage: 120 MG, UNKNOWN
     Route: 058
     Dates: start: 20190625, end: 20191007
  10. PANTOPRAZOLE SODIUM. [Concomitant]
     Active Substance: PANTOPRAZOLE SODIUM
     Dosage: 40 MG

REACTIONS (4)
  - Dementia [Unknown]
  - Migraine [Unknown]
  - Product dose omission [Unknown]
  - Cognitive disorder [Unknown]
